FAERS Safety Report 16543338 (Version 1)
Quarter: 2019Q3

REPORT INFORMATION
  Report Type: Spontaneous
  Country: US (occurrence: US)
  Receive Date: 20190709
  Receipt Date: 20190709
  Transmission Date: 20191004
  Serious: No
  Sender: FDA-Public Use
  Company Number: US-BAYER-2019-129084

PATIENT
  Sex: Female
  Weight: 41 kg

DRUGS (5)
  1. ISONITRIL [Concomitant]
     Dosage: UNK
  2. QUINAPRIL. [Concomitant]
     Active Substance: QUINAPRIL
     Dosage: UNK
  3. SIMVASTATIN. [Concomitant]
     Active Substance: SIMVASTATIN
     Dosage: UNK
  4. LODIPINE [LACIDIPINE] [Concomitant]
     Dosage: UNK
  5. MIRALAX [Suspect]
     Active Substance: POLYETHYLENE GLYCOL 3350
     Indication: GASTROINTESTINAL DISORDER
     Dosage: UNK
     Route: 048

REACTIONS (4)
  - Abdominal pain upper [Not Recovered/Not Resolved]
  - Frequent bowel movements [Not Recovered/Not Resolved]
  - Weight decreased [None]
  - Diarrhoea [Not Recovered/Not Resolved]

NARRATIVE: CASE EVENT DATE: 2018
